FAERS Safety Report 12712301 (Version 3)
Quarter: 2016Q3

REPORT INFORMATION
  Report Type: Other
  Country: IT (occurrence: IT)
  Receive Date: 20160902
  Receipt Date: 20160926
  Transmission Date: 20161109
  Serious: Yes (Other)
  Sender: FDA-Public Use
  Company Number: IT-CELLTRION INC.-2016IT008343

PATIENT

DRUGS (6)
  1. BARACLUDE [Concomitant]
     Active Substance: ENTECAVIR
     Indication: LIVER DISORDER
     Dosage: 0.5 MG, UNK
     Route: 048
     Dates: start: 201603
  2. REMSIMA [Suspect]
     Active Substance: INFLIXIMAB
     Indication: PSORIATIC ARTHROPATHY
     Dosage: 5MG FOR KG OF BODY WEIGHT , CYCLIC
     Route: 045
     Dates: start: 20150421, end: 20150421
  3. LEFLUNOMIDE. [Suspect]
     Active Substance: LEFLUNOMIDE
     Dosage: UNK
  4. STELARA [Suspect]
     Active Substance: USTEKINUMAB
     Indication: PSORIATIC ARTHROPATHY
     Dosage: 45,MG,CYCLIC
     Route: 058
     Dates: start: 20160319, end: 201606
  5. LEFLUNOMIDE. [Suspect]
     Active Substance: LEFLUNOMIDE
     Indication: PSORIATIC ARTHROPATHY
     Dosage: 20 MG, DAILY
     Route: 048
     Dates: start: 20121001, end: 20160630
  6. REMSIMA [Suspect]
     Active Substance: INFLIXIMAB
     Dosage: 5MG FOR KG OF BODY WEIGHT , CYCLIC
     Route: 045
     Dates: start: 20151222, end: 20151222

REACTIONS (2)
  - Incorrect route of drug administration [Unknown]
  - Follicle centre lymphoma, follicular grade I, II, III recurrent [Unknown]

NARRATIVE: CASE EVENT DATE: 20150421
